FAERS Safety Report 20815455 (Version 1)
Quarter: 2022Q2

REPORT INFORMATION
  Report Type: Spontaneous
  Country: US (occurrence: US)
  Receive Date: 20220511
  Receipt Date: 20220511
  Transmission Date: 20220720
  Serious: No
  Sender: FDA-Public Use
  Company Number: US-PFIZER INC-202200636000

PATIENT
  Age: 67 Year
  Sex: Female
  Weight: 89.36 kg

DRUGS (1)
  1. IBRANCE [Suspect]
     Active Substance: PALBOCICLIB
     Indication: Neoplasm malignant
     Dosage: (ONCE A DAY, FOR 21 DAYS)
     Route: 048

REACTIONS (1)
  - Illness [Unknown]
